FAERS Safety Report 9684323 (Version 6)
Quarter: 2014Q1

REPORT INFORMATION
  Report Type: Report from Study
  Country: AU (occurrence: AU)
  Receive Date: 20131112
  Receipt Date: 20140206
  Transmission Date: 20141002
  Serious: Yes (Death, Hospitalization, Other)
  Sender: FDA-Public Use
  Company Number: AU-TEVA-431456USA

PATIENT
  Age: 74 Year
  Sex: Female
  Weight: 65.86 kg

DRUGS (18)
  1. BENDAMUSTINE [Suspect]
     Indication: MANTLE CELL LYMPHOMA
     Route: 042
     Dates: start: 20130702
  2. BENDAMUSTINE [Suspect]
     Route: 042
     Dates: start: 20130828
  3. BENDAMUSTINE [Suspect]
     Route: 042
     Dates: start: 20130924, end: 20130925
  4. RITUXIMAB [Suspect]
     Indication: MANTLE CELL LYMPHOMA
     Route: 042
     Dates: start: 20130702
  5. RITUXIMAB [Suspect]
     Route: 042
     Dates: start: 20130827
  6. RITUXIMAB [Suspect]
     Route: 042
     Dates: start: 20130924
  7. IBRUTINIB/PLACEBO [Suspect]
     Indication: MANTLE CELL LYMPHOMA
     Dosage: 560 MILLIGRAM DAILY;
     Route: 048
     Dates: start: 20130702
  8. IBRUTINIB/PLACEBO [Suspect]
     Dosage: 560 MILLIGRAM DAILY;
     Route: 048
     Dates: start: 20130829
  9. IBRUTINIB/PLACEBO [Suspect]
     Dosage: 560 MILLIGRAM DAILY;
     Route: 048
     Dates: start: 20130924
  10. IBRUTINIB/PLACEBO [Suspect]
     Dosage: 560 MILLIGRAM DAILY;
     Route: 048
     Dates: start: 20131006
  11. LANTUS [Concomitant]
     Indication: DIABETES MELLITUS
     Dosage: 8 IU (INTERNATIONAL UNIT) DAILY;
     Dates: start: 2002
  12. ATORVASTATIN [Concomitant]
     Indication: HYPERCHOLESTEROLAEMIA
     Dosage: 40 MILLIGRAM DAILY;
     Route: 048
     Dates: start: 2002
  13. RABEPRAZOLE [Concomitant]
     Indication: GASTROOESOPHAGEAL REFLUX DISEASE
     Dosage: 40 MILLIGRAM DAILY;
     Route: 048
     Dates: start: 1995
  14. RANITIDINE HYDROCHLORIDE [Concomitant]
     Indication: GASTROOESOPHAGEAL REFLUX DISEASE
     Dosage: 300 MILLIGRAM DAILY;
     Route: 048
     Dates: start: 20130107
  15. NOVORAPID [Concomitant]
     Indication: DIABETES MELLITUS
     Dosage: 9 IU (INTERNATIONAL UNIT) DAILY;
     Route: 058
     Dates: start: 2002
  16. QUINAPRIL HYDROCHLORIDE [Concomitant]
     Indication: HYPERTENSION
     Dosage: 20/12.5 MG
     Route: 048
     Dates: start: 2002
  17. SPAN-K [Concomitant]
     Indication: MINERAL SUPPLEMENTATION
     Dates: start: 20130707
  18. ALLOPURINOL [Concomitant]
     Indication: PROPHYLAXIS
     Dates: start: 20130701

REACTIONS (4)
  - Malignant neoplasm progression [Fatal]
  - Metabolic acidosis [Not Recovered/Not Resolved]
  - Nausea [Not Recovered/Not Resolved]
  - Septic shock [Not Recovered/Not Resolved]
